FAERS Safety Report 7563466-4 (Version None)
Quarter: 2011Q2

REPORT INFORMATION
  Report Type: 
  Country: None (occurrence: None)
  Receive Date: 20110622
  Receipt Date: 20110609
  Transmission Date: 20111010
  Serious: No
  Sender: FDA-Public Use
  Company Number: MX-ELI_LILLY_AND_COMPANY-MX201105006932

PATIENT
  Age: 21 Year
  Sex: Female

DRUGS (2)
  1. ZYPREXA [Suspect]
     Indication: BIPOLAR DISORDER
     Dosage: 20 MG, UNK
     Dates: start: 20110419
  2. VALPROATE MAGNESIUM [Concomitant]

REACTIONS (2)
  - OEDEMA PERIPHERAL [None]
  - GENERALISED OEDEMA [None]
